FAERS Safety Report 16568344 (Version 1)
Quarter: 2019Q3

REPORT INFORMATION
  Report Type: Report from Study
  Country: US (occurrence: US)
  Receive Date: 20190712
  Receipt Date: 20190712
  Transmission Date: 20191004
  Serious: Yes (Other)
  Sender: FDA-Public Use
  Company Number: US-SA-2015SA137805

PATIENT
  Age: 76 Year
  Sex: Female

DRUGS (3)
  1. SOLOSTAR [Suspect]
     Active Substance: DEVICE
     Indication: TYPE 2 DIABETES MELLITUS
  2. INSULIN GLARGINE [Suspect]
     Active Substance: INSULIN GLARGINE
     Indication: TYPE 2 DIABETES MELLITUS
     Dosage: 65 IU, QD
  3. INSULIN GLARGINE [Suspect]
     Active Substance: INSULIN GLARGINE
     Dosage: 60 IU, QD
     Route: 058

REACTIONS (6)
  - Blood glucose abnormal [Unknown]
  - Fall [Recovered/Resolved]
  - Concussion [Recovered/Resolved]
  - Product dose omission [Not Recovered/Not Resolved]
  - Product storage error [Unknown]
  - Cataract [Unknown]

NARRATIVE: CASE EVENT DATE: 20190701
